FAERS Safety Report 9517913 (Version 2)
Quarter: 2013Q4

REPORT INFORMATION
  Report Type: Spontaneous
  Country: SE (occurrence: SE)
  Receive Date: 20130912
  Receipt Date: 20131001
  Transmission Date: 20140711
  Serious: Yes (Hospitalization)
  Sender: FDA-Public Use
  Company Number: SE-ASTRAZENECA-2013SE67504

PATIENT
  Age: 87 Year
  Sex: Male

DRUGS (2)
  1. BRILIQUE [Suspect]
     Route: 048
     Dates: start: 201308, end: 201308
  2. TROMBYL [Suspect]
     Dates: start: 201308

REACTIONS (4)
  - Anaemia [Unknown]
  - Hiatus hernia [Unknown]
  - Gastroduodenitis [Unknown]
  - Melaena [Unknown]
